FAERS Safety Report 5329511-1 (Version None)
Quarter: 2007Q1

REPORT INFORMATION
  Report Type: 
  Country: None (occurrence: None)
  Receive Date: 20070223
  Receipt Date: 20060315
  Transmission Date: 20070707
  Serious: Yes (Life-Threatening, Hospitalization)
  Sender: FDA-Public Use
  Company Number: WAES 0603USA02530

PATIENT
  Age: 50 Year
  Sex: Female

DRUGS (3)
  1. ZOCOR [Suspect]
     Indication: BLOOD CHOLESTEROL INCREASED
     Dosage: PO
     Route: 048
     Dates: start: 20051001, end: 20060315
  2. GLUCOPHAGE [Concomitant]
  3. SYNTHROID [Concomitant]

REACTIONS (1)
  - RHABDOMYOLYSIS [None]
